FAERS Safety Report 8874231 (Version 4)
Quarter: 2013Q2

REPORT INFORMATION
  Report Type: Report from Study
  Country: JP (occurrence: JP)
  Receive Date: 20121031
  Receipt Date: 20130618
  Transmission Date: 20140414
  Serious: Yes (Other)
  Sender: FDA-Public Use
  Company Number: JP-009507513-1210JPN011510

PATIENT
  Age: 52 Year
  Sex: Female
  Weight: 48 kg

DRUGS (15)
  1. PEGINTRON [Suspect]
     Indication: CHRONIC HEPATITIS C
     Dosage: 1.033 MICROGRAM PER KILOGRAM, QW
     Route: 058
     Dates: start: 20120827, end: 20121008
  2. PEGINTRON [Suspect]
     Dosage: 1.033 MICROGRAM PER KILOGRAM, QW
     Route: 058
     Dates: start: 20121016, end: 20121105
  3. PEGINTRON [Suspect]
     Dosage: 1.24 MICROGRAM PER KILOGRAM, QW
     Route: 058
     Dates: start: 20121106
  4. REBETOL [Suspect]
     Indication: CHRONIC HEPATITIS C
     Dosage: 400MG/200 MG, EVERY OTHER DAY
     Route: 048
     Dates: start: 20120827, end: 20120916
  5. REBETOL [Suspect]
     Dosage: 400 MG, QD
     Route: 048
     Dates: start: 20120917, end: 20121001
  6. REBETOL [Suspect]
     Dosage: 200 MG, QD
     Route: 048
     Dates: start: 20121016, end: 20121022
  7. REBETOL [Suspect]
     Dosage: 400 MG, QD
     Route: 048
     Dates: start: 20121023, end: 20130114
  8. REBETOL [Suspect]
     Dosage: 600 MG, QD
     Route: 048
     Dates: start: 20130115
  9. TELAVIC [Suspect]
     Indication: CHRONIC HEPATITIS C
     Dosage: 1500 MG, QD
     Route: 048
     Dates: start: 20120827, end: 20121001
  10. TELAVIC [Suspect]
     Dosage: 1000 MG, QD
     Route: 048
     Dates: start: 20121002, end: 20121008
  11. TELAVIC [Suspect]
     Dosage: 1000 MG, QD
     Route: 048
     Dates: start: 20121016, end: 20121105
  12. TELAVIC [Suspect]
     Dosage: 1500 MG, QD
     Route: 048
     Dates: start: 20121106, end: 20121126
  13. VOLTAREN [Concomitant]
     Indication: PROPHYLAXIS
     Dosage: 25 MG/DAY, PRN
     Route: 054
     Dates: start: 20120828
  14. DIFLAL [Concomitant]
     Indication: PROPHYLAXIS
     Dosage: PROPER QUANTITY, PRN
     Route: 061
     Dates: start: 20120830
  15. ALLELOCK [Concomitant]
     Indication: PROPHYLAXIS
     Dosage: 10 MG, QD , FORMULATION: POR
     Route: 048
     Dates: start: 20120830, end: 20121008

REACTIONS (2)
  - Erythema [Recovering/Resolving]
  - Anaemia [Not Recovered/Not Resolved]
